FAERS Safety Report 24155249 (Version 5)
Quarter: 2025Q1

REPORT INFORMATION
  Report Type: Report from Study
  Country: US (occurrence: US)
  Receive Date: 20240731
  Receipt Date: 20250115
  Transmission Date: 20250409
  Serious: Yes (Hospitalization, Other)
  Sender: NOVARTIS
  Company Number: US-002147023-NVSC2024US153486

PATIENT
  Sex: Female

DRUGS (1)
  1. KESIMPTA [Suspect]
     Active Substance: OFATUMUMAB
     Indication: Multiple sclerosis
     Dosage: 0.4 ML, QMO
     Route: 058
     Dates: start: 20240227

REACTIONS (10)
  - Unevaluable event [Unknown]
  - Apnoeic attack [Unknown]
  - Pneumonia [Unknown]
  - Lymphocyte count decreased [Unknown]
  - Bronchitis [Unknown]
  - Cough [Unknown]
  - Product distribution issue [Unknown]
  - Muscular weakness [Unknown]
  - Infection [Unknown]
  - Limb discomfort [Unknown]
